FAERS Safety Report 5971936-5 (Version None)
Quarter: 2008Q4

REPORT INFORMATION
  Report Type: 
  Country: None (occurrence: None)
  Receive Date: 20081201
  Receipt Date: 20081124
  Transmission Date: 20090506
  Serious: Yes (Hospitalization)
  Sender: FDA-Public Use
  Company Number: DE-BIOGENIDEC-2008BI031910

PATIENT
  Age: 42 Year
  Sex: Female
  Weight: 68 kg

DRUGS (3)
  1. AVONEX [Suspect]
     Indication: RELAPSING-REMITTING MULTIPLE SCLEROSIS
     Route: 030
     Dates: start: 20060301
  2. ACETAMINOPHEN [Concomitant]
     Indication: DRUG USE FOR UNKNOWN INDICATION
  3. PROPIVERIN [Concomitant]
     Indication: DRUG USE FOR UNKNOWN INDICATION

REACTIONS (9)
  - ARTHRALGIA [None]
  - ERYTHEMA [None]
  - GAIT DISTURBANCE [None]
  - HYPERSENSITIVITY [None]
  - JOINT STIFFNESS [None]
  - MULTIPLE SCLEROSIS RELAPSE [None]
  - NECK PAIN [None]
  - PAIN IN EXTREMITY [None]
  - SWELLING [None]
